FAERS Safety Report 7930041-9 (Version None)
Quarter: 2011Q4

REPORT INFORMATION
  Report Type: 
  Country: None (occurrence: None)
  Receive Date: 20111121
  Receipt Date: 20111109
  Transmission Date: 20120403
  Serious: Yes (Hospitalization, Other)
  Sender: FDA-Public Use
  Company Number: AU-ASTELLAS-2011US007655

PATIENT
  Sex: Male

DRUGS (5)
  1. ERLOTINIB HYDROCHLORIDE [Suspect]
     Indication: ADENOCARCINOMA PANCREAS
     Dosage: UNK MG, UNKNOWN/D
     Route: 048
     Dates: start: 20110809, end: 20110905
  2. GEMCITABINE [Suspect]
     Indication: ADENOCARCINOMA PANCREAS
     Dosage: 900 MG, WEEKLY
     Route: 042
     Dates: start: 20110809
  3. ASCORBIC ACID [Concomitant]
     Indication: NASOPHARYNGITIS
     Dosage: 1 DF, UNKNOWN/D
     Route: 048
     Dates: start: 20110820
  4. RABEPRAZOLE SODIUM [Concomitant]
     Indication: DYSPEPSIA
     Dosage: 1 DF, UNKNOWN/D
     Route: 048
     Dates: start: 20050618
  5. ATIVAN [Concomitant]
     Indication: ANXIETY
     Dosage: UNK
     Route: 065
     Dates: start: 20110823

REACTIONS (1)
  - CHOLECYSTITIS [None]
